FAERS Safety Report 23679806 (Version 1)
Quarter: 2024Q1

REPORT INFORMATION
  Report Type: Report from Study
  Country: US (occurrence: US)
  Receive Date: 20240327
  Receipt Date: 20240327
  Transmission Date: 20240410
  Serious: No
  Sender: FDA-Public Use
  Company Number: US-INCYTE CORPORATION-2024IN001777

PATIENT

DRUGS (1)
  1. JAKAFI [Suspect]
     Active Substance: RUXOLITINIB
     Indication: Myelofibrosis
     Dosage: 10 MILLIGRAM, BID
     Route: 048
     Dates: start: 20191218

REACTIONS (6)
  - Bone pain [Unknown]
  - Splenomegaly [Unknown]
  - Abdominal pain upper [Unknown]
  - Night sweats [Unknown]
  - Fatigue [Unknown]
  - Anaemia [Unknown]
